FAERS Safety Report 10432105 (Version 3)
Quarter: 2015Q3

REPORT INFORMATION
  Report Type: Report from Study
  Country: BR (occurrence: BR)
  Receive Date: 20140905
  Receipt Date: 20150706
  Transmission Date: 20151125
  Serious: Yes (Hospitalization, Other)
  Sender: FDA-Public Use
  Company Number: BR-SHIRE-BR201405447

PATIENT
  Age: 10 Year
  Sex: Male
  Weight: 28 kg

DRUGS (8)
  1. IDURSULFASE [Suspect]
     Active Substance: IDURSULFASE
     Dosage: 0.35 MG/KG, 1X/WEEK
     Route: 041
     Dates: start: 20090828
  2. CARVEDILOL. [Concomitant]
     Active Substance: CARVEDILOL
     Indication: CARDIAC VALVE DISEASE
     Dosage: 3.125 MG, 2X/DAY:BID (Q12H)
     Route: 065
     Dates: start: 2012
  3. IDURSULFASE [Suspect]
     Active Substance: IDURSULFASE
     Indication: MUCOPOLYSACCHARIDOSIS II
     Dosage: UNK, 1X/WEEK
     Route: 041
  4. SPIRONOLACTONE. [Concomitant]
     Active Substance: SPIRONOLACTONE
     Indication: HYPERTENSION
     Dosage: 25 MG, 2X/DAY:BID (Q12H)
     Route: 065
     Dates: start: 20140815
  5. APRESOLINE HYDROCHLORIDE [Concomitant]
     Active Substance: HYDRALAZINE HYDROCHLORIDE
     Indication: HYPERTENSION
     Dosage: 12.5 MG (HALF OF 25 MG TABLET), 4X/DAY:QID (Q6H)
     Route: 065
     Dates: start: 20140815
  6. IDURSULFASE [Suspect]
     Active Substance: IDURSULFASE
     Dosage: 0.35 MG/KG, 1X/WEEK (ALTERNATING WITH 0.7 MG)
     Route: 041
     Dates: start: 20090318
  7. IDURSULFASE [Suspect]
     Active Substance: IDURSULFASE
     Dosage: UNK, 1X/WEEK
     Route: 041
     Dates: start: 20090306
  8. SPIRONOLACTONE. [Concomitant]
     Active Substance: SPIRONOLACTONE
     Dosage: UNK, UNKNOWN (GRADUALLY DISCONTINUING)
     Route: 065

REACTIONS (4)
  - Bronchostenosis [Unknown]
  - Adenoidal disorder [Recovered/Resolved]
  - Dyspnoea [Not Recovered/Not Resolved]
  - Bronchospasm [Not Recovered/Not Resolved]

NARRATIVE: CASE EVENT DATE: 20140811
